FAERS Safety Report 5449265-8 (Version None)
Quarter: 2007Q3

REPORT INFORMATION
  Report Type: 
  Country: None (occurrence: None)
  Receive Date: 20070907
  Receipt Date: 20070823
  Transmission Date: 20080115
  Serious: Yes (Congenital Anomaly)
  Sender: FDA-Public Use
  Company Number: 8026385

PATIENT
  Sex: Male
  Weight: 2.43 kg

DRUGS (3)
  1. KEPPRA [Suspect]
     Dosage: 1000 MG /D TRP
     Dates: start: 20050525
  2. VALPROIC ACID [Suspect]
     Dosage: 1000 MG /D TRP
     Dates: start: 20010101
  3. LAMOTRIGINE [Suspect]
     Dosage: 350 MG /D
     Dates: start: 20030101, end: 20050622

REACTIONS (5)
  - DEVELOPMENTAL DELAY [None]
  - DRUG EXPOSURE DURING PREGNANCY [None]
  - NEONATAL TACHYCARDIA [None]
  - SUPRAVENTRICULAR TACHYCARDIA [None]
  - VENTRICULAR SEPTAL DEFECT [None]
